FAERS Safety Report 5907619-7 (Version None)
Quarter: 2008Q4

REPORT INFORMATION
  Report Type: 
  Country: None (occurrence: None)
  Receive Date: 20081003
  Receipt Date: 20080922
  Transmission Date: 20090506
  Serious: Yes (Hospitalization)
  Sender: FDA-Public Use
  Company Number: US-PFIZER INC-2008081493

PATIENT
  Age: 46 Year
  Sex: Male

DRUGS (2)
  1. PREDNISONE [Suspect]
     Indication: PULMONARY SARCOIDOSIS
     Dosage: DAILY DOSE:40MG
  2. PREDNISONE [Suspect]
     Dosage: DAILY DOSE:20MG

REACTIONS (3)
  - ACUTE CHEST SYNDROME [None]
  - APHASIA [None]
  - SICKLE CELL ANAEMIA WITH CRISIS [None]
